FAERS Safety Report 6064767-1 (Version None)
Quarter: 2009Q1

REPORT INFORMATION
  Report Type: 
  Country: None (occurrence: None)
  Receive Date: 20090204
  Receipt Date: 20081107
  Transmission Date: 20090719
  Serious: No
  Sender: FDA-Public Use
  Company Number: A0755424A

PATIENT
  Age: 32 Year
  Sex: Female

DRUGS (4)
  1. ARIXTRA [Suspect]
     Indication: ANTIPHOSPHOLIPID ANTIBODIES
     Dosage: 2.5MG PER DAY
     Route: 058
     Dates: start: 20080501
  2. VITAMIN TAB [Concomitant]
  3. CALCIUM [Concomitant]
  4. ASPIRIN [Concomitant]

REACTIONS (1)
  - DRUG EXPOSURE DURING PREGNANCY [None]
